FAERS Safety Report 12632657 (Version 2)
Quarter: 2016Q3

REPORT INFORMATION
  Report Type: Spontaneous
  Country: US (occurrence: US)
  Receive Date: 20160808
  Receipt Date: 20160808
  Transmission Date: 20161109
  Serious: No
  Sender: FDA-Public Use
  Company Number: US-BEH-2015056433

PATIENT
  Sex: Male
  Weight: 15 kg

DRUGS (21)
  1. NEURONTIN [Concomitant]
     Active Substance: GABAPENTIN
  2. PEDIALYTE [Concomitant]
     Active Substance: POTASSIUM CITRATE\SODIUM CITRATE\ZINC
  3. SENNA [Concomitant]
     Active Substance: SENNA LEAF\SENNOSIDES\SENNOSIDES A AND B
  4. SALINE [Concomitant]
     Active Substance: SODIUM CHLORIDE
  5. MAALOX ADVANCED [Concomitant]
  6. HIZENTRA [Suspect]
     Active Substance: HUMAN IMMUNOGLOBULIN G
     Indication: KERNICTERUS
     Route: 058
  7. EPIPEN JR [Concomitant]
     Active Substance: EPINEPHRINE
  8. CHILDRENS TYLENOL [Concomitant]
     Active Substance: ACETAMINOPHEN
  9. CHILD^S BENADRYL [Concomitant]
  10. MIRALAX [Concomitant]
     Active Substance: POLYETHYLENE GLYCOL 3350
  11. RHINOCORT AQUA [Concomitant]
     Active Substance: BUDESONIDE
  12. PULMICORT TURBUHALER [Concomitant]
     Active Substance: BUDESONIDE
  13. GLYCERIN PEDIATRIC SUPPOS [Concomitant]
  14. HIZENTRA [Suspect]
     Active Substance: HUMAN IMMUNOGLOBULIN G
     Indication: ACUTE RESPIRATORY FAILURE
     Route: 058
  15. ALLEGRA-D [Concomitant]
     Active Substance: FEXOFENADINE\PSEUDOEPHEDRINE
  16. OXYGEN. [Concomitant]
     Active Substance: OXYGEN
  17. IPRATROPIUM BR [Concomitant]
  18. CHILD ZYRTEC [Concomitant]
  19. XOPENEX [Concomitant]
     Active Substance: LEVALBUTEROL HYDROCHLORIDE
  20. HIZENTRA [Suspect]
     Active Substance: HUMAN IMMUNOGLOBULIN G
     Indication: ACUTE RESPIRATORY FAILURE
     Route: 058
  21. PEDIASURE [Concomitant]
     Active Substance: VITAMINS

REACTIONS (1)
  - Infusion site extravasation [Unknown]
